FAERS Safety Report 23778438 (Version 3)
Quarter: 2024Q2

REPORT INFORMATION
  Report Type: Spontaneous
  Country: US (occurrence: US)
  Receive Date: 20240424
  Receipt Date: 20240523
  Transmission Date: 20240716
  Serious: No
  Sender: FDA-Public Use
  Company Number: US-MYLANLABS-2024M1031302

PATIENT
  Age: 65 Year
  Sex: Female
  Weight: 70.31 kg

DRUGS (1)
  1. BREYNA [Suspect]
     Active Substance: BUDESONIDE\FORMOTEROL FUMARATE
     Indication: Product used for unknown indication
     Dosage: 80 MICROGRAM/4.5 MICROGRAM
     Route: 055

REACTIONS (8)
  - Lip swelling [Unknown]
  - Swelling face [Unknown]
  - Dysphagia [Unknown]
  - Red cell distribution width decreased [Unknown]
  - Eosinophil count increased [Unknown]
  - Mean cell haemoglobin increased [Unknown]
  - Mean platelet volume increased [Unknown]
  - Red blood cell count decreased [Unknown]

NARRATIVE: CASE EVENT DATE: 20240301
